FAERS Safety Report 23525198 (Version 1)
Quarter: 2024Q1

REPORT INFORMATION
  Report Type: Spontaneous
  Country: JP (occurrence: JP)
  Receive Date: 20240215
  Receipt Date: 20240215
  Transmission Date: 20240409
  Serious: Yes (Hospitalization, Other)
  Sender: FDA-Public Use
  Company Number: JP-aspen-SDZ2023JP005116AA

PATIENT
  Sex: Male
  Weight: 2769 kg

DRUGS (1)
  1. VALACYCLOVIR HYDROCHLORIDE [Suspect]
     Active Substance: VALACYCLOVIR HYDROCHLORIDE
     Indication: Maternal exposure during pregnancy
     Dosage: UNK
     Route: 064

REACTIONS (2)
  - Double outlet right ventricle [Unknown]
  - Foetal exposure during pregnancy [Unknown]
